FAERS Safety Report 15884583 (Version 1)
Quarter: 2019Q1

REPORT INFORMATION
  Report Type: Report from Study
  Country: JP (occurrence: JP)
  Receive Date: 20190129
  Receipt Date: 20190129
  Transmission Date: 20190417
  Serious: Yes (Life-Threatening, Other)
  Sender: FDA-Public Use
  Company Number: JP-CLINIGEN GROUP PLC/ CLINIGEN HEALTHCARE LTD-JP-CLGN-15-00012

PATIENT
  Age: 82 Year
  Sex: Male
  Weight: 56.7 kg

DRUGS (19)
  1. CALSED [Suspect]
     Active Substance: AMRUBICIN HYDROCHLORIDE
     Indication: BLADDER CANCER
  2. PL [Concomitant]
     Active Substance: ACETAMINOPHEN\CAFFEINE\PROMETHAZINE\SALICYLAMIDE
     Indication: NASOPHARYNGITIS
     Route: 048
  3. ALESION [Concomitant]
     Active Substance: EPINASTINE HYDROCHLORIDE
     Indication: RHINITIS ALLERGIC
     Route: 048
  4. HACHIAZULE [Concomitant]
     Indication: STOMATITIS
     Route: 049
  5. G-LASTA [Suspect]
     Active Substance: PEGFILGRASTIM
     Indication: PROPHYLAXIS
     Route: 058
     Dates: start: 20150501, end: 20150501
  6. XYLOCAINE [Concomitant]
     Active Substance: LIDOCAINE HYDROCHLORIDE
     Indication: INFUSION SITE EXTRAVASATION
     Dates: start: 20150430, end: 20150430
  7. TAKEPRON [Concomitant]
     Active Substance: LANSOPRAZOLE
     Indication: PROPHYLAXIS
     Route: 048
  8. CALSED [Suspect]
     Active Substance: AMRUBICIN HYDROCHLORIDE
     Indication: PAPILLARY THYROID CANCER
  9. PRIMPERAN [Concomitant]
     Active Substance: METOCLOPRAMIDE HYDROCHLORIDE
     Indication: NAUSEA
     Route: 048
  10. RHYTHMY [Concomitant]
     Active Substance: RILMAZAFONE HYDROCHLORIDE
     Indication: INSOMNIA
     Route: 048
  11. SAVENE [Suspect]
     Active Substance: DEXRAZOXANE
     Indication: INFUSION SITE EXTRAVASATION
     Route: 041
     Dates: start: 20150430, end: 20150430
  12. ISOTONIC SODIUM CHLORIDE SOLUTION [Concomitant]
     Active Substance: SODIUM CHLORIDE
     Indication: MEDICATION DILUTION
     Route: 041
     Dates: start: 20150430, end: 20150430
  13. RINDERON V [Concomitant]
     Active Substance: BETAMETHASONE VALERATE
     Indication: INFUSION SITE EXTRAVASATION
     Dates: start: 20150430, end: 20150430
  14. KENALOG [Concomitant]
     Active Substance: TRIAMCINOLONE ACETONIDE
     Indication: STOMATITIS
     Route: 049
  15. MOHRUS TAPE [Concomitant]
     Active Substance: KETOPROFEN
     Indication: BACK PAIN
     Route: 062
  16. KYTRIL [Concomitant]
     Active Substance: GRANISETRON HYDROCHLORIDE
     Indication: PROPHYLAXIS
     Route: 042
     Dates: end: 20150430
  17. CALONAL [Concomitant]
     Active Substance: ACETAMINOPHEN
     Indication: PYREXIA
     Route: 048
  18. CALSED [Suspect]
     Active Substance: AMRUBICIN HYDROCHLORIDE
     Indication: LUNG NEOPLASM MALIGNANT
     Route: 042
     Dates: start: 20150428, end: 20150430
  19. DERMOVATE [Concomitant]
     Active Substance: CLOBETASOL
     Indication: INFUSION SITE EXTRAVASATION
     Route: 003
     Dates: start: 20150430, end: 20150515

REACTIONS (3)
  - Enterocolitis [Recovered/Resolved]
  - Bone marrow failure [Recovered/Resolved]
  - Injection site rash [Recovered/Resolved]

NARRATIVE: CASE EVENT DATE: 20150501
